FAERS Safety Report 19958570 (Version 2)
Quarter: 2021Q4

REPORT INFORMATION
  Report Type: Spontaneous
  Country: JP (occurrence: JP)
  Receive Date: 20211015
  Receipt Date: 20211208
  Transmission Date: 20220303
  Serious: Yes (Death, Other)
  Sender: FDA-Public Use
  Company Number: JP-HQ SPECIALTY-JP-2021INT000182

PATIENT
  Age: 31 Year
  Sex: Female
  Weight: 30 kg

DRUGS (13)
  1. DEXMEDETOMIDINE HYDROCHLORIDE [Suspect]
     Active Substance: DEXMEDETOMIDINE HYDROCHLORIDE
     Indication: Sedative therapy
     Dosage: STRENGTH: 200 MCG, .5 MCG/KG/HOUR (1HR)
     Route: 041
     Dates: start: 20200516, end: 20200518
  2. FAMOTIDINE [Concomitant]
     Active Substance: FAMOTIDINE
     Indication: Haemorrhage
     Dosage: 40 MG, (20 MG, 1 IN 12 HR)
     Route: 042
     Dates: start: 20200509, end: 20200521
  3. PHENOBARBITAL SODIUM [Concomitant]
     Active Substance: PHENOBARBITAL SODIUM
     Indication: Epilepsy
     Dosage: 150 MG, 1 IN 1 D
     Route: 042
     Dates: start: 20200509, end: 20200518
  4. LEVETIRACETAM [Concomitant]
     Active Substance: LEVETIRACETAM
     Indication: Epilepsy
     Dosage: 1000 MG, (500 MG, 1 IN 12 HR)
     Route: 042
     Dates: start: 20200509, end: 20200518
  5. MEROPENEM [Concomitant]
     Active Substance: MEROPENEM
     Indication: Infection
     Dosage: 1.5 GM, (.5 GM, 1 IN 8 HR)
     Route: 042
     Dates: start: 20200512, end: 20200521
  6. NAFAMOSTAT [Concomitant]
     Active Substance: NAFAMOSTAT
     Indication: Disseminated intravascular coagulation
     Dosage: UNK, SINGLE 6.25 MG/H DOSAGE: ONCE)
     Route: 041
     Dates: start: 20200513, end: 20200521
  7. PROBENECID [Concomitant]
     Active Substance: PROBENECID
     Indication: Acute respiratory distress syndrome
     Dosage: 10 MG, (5 MG, 1 IN 12 HR)
     Route: 042
     Dates: start: 20200514, end: 20200518
  8. DOPAMINE HYDROCHLORIDE [Concomitant]
     Active Substance: DOPAMINE HYDROCHLORIDE
     Indication: Shock
     Dosage: SINGLE (5 MCG/KG/MIN DOSAGE: ONCE, 5 MCG/KG/MIN)
     Route: 041
     Dates: start: 20200516, end: 20200521
  9. PROPOFOL [Concomitant]
     Active Substance: PROPOFOL
     Indication: Sedative therapy
     Dosage: 30 MG, 1 D
     Route: 042
     Dates: start: 20200516
  10. VECURONIUM BROMIDE [Concomitant]
     Active Substance: VECURONIUM BROMIDE
     Indication: Hypotonia
     Dosage: 3 MG, 1 D
     Route: 042
     Dates: start: 20200516
  11. VECURONIUM BROMIDE [Concomitant]
     Active Substance: VECURONIUM BROMIDE
     Dosage: 20 MCG/H DOSAGE: ONCE, 20 MCG/H
     Route: 041
     Dates: start: 20200516, end: 20200518
  12. FENTANYL [Suspect]
     Active Substance: FENTANYL
     Indication: Analgesic therapy
     Dosage: 50 MG, UNK
     Route: 042
     Dates: start: 20200516, end: 20200518
  13. FENTANYL [Suspect]
     Active Substance: FENTANYL
     Indication: Sedative therapy
     Dosage: SINGLE (20MCG/H DOSAGE: ONCE, 20MCG/H)
     Route: 041
     Dates: start: 20200516, end: 20200518

REACTIONS (2)
  - Multiple organ dysfunction syndrome [Fatal]
  - Hyperthermia [Recovered/Resolved]
